FAERS Safety Report 25072664 (Version 2)
Quarter: 2025Q4

REPORT INFORMATION
  Report Type: Spontaneous
  Country: EU (occurrence: EU)
  Receive Date: 20250313
  Receipt Date: 20251121
  Transmission Date: 20260117
  Serious: Yes (Other)
  Sender: VELOXIS PHARMACEUTICALS
  Company Number: EU-ROCHE-2712013

PATIENT
  Age: 6 Year
  Sex: Male
  Weight: 20 kg

DRUGS (11)
  1. TACROLIMUS [Suspect]
     Active Substance: TACROLIMUS
     Indication: Nephrotic syndrome
     Dosage: UNK
  2. TACROLIMUS [Suspect]
     Active Substance: TACROLIMUS
     Indication: Off label use
  3. DARATUMUMAB [Suspect]
     Active Substance: DARATUMUMAB
     Indication: Nephrotic syndrome
     Dosage: 445 MILLIGRAM AT DAY 14
     Route: 065
  4. PREDNISONE [Suspect]
     Active Substance: PREDNISONE
     Indication: Nephrotic syndrome
     Dosage: UNK
  5. PREDNISONE [Suspect]
     Active Substance: PREDNISONE
     Dosage: 20 MG, QD (AFTER DARATUMUMAB INFUSION)
  6. PREDNISONE [Suspect]
     Active Substance: PREDNISONE
     Dosage: 60 MG/M2, BID
  7. OBINUTUZUMAB [Suspect]
     Active Substance: OBINUTUZUMAB
     Indication: Nephrotic syndrome
     Dosage: 445 MILLIGRAM AT DAY 0
  8. METHYLPREDNISOLONE [Suspect]
     Active Substance: METHYLPREDNISOLONE
     Indication: Nephrotic syndrome
     Dosage: 1 MG/KG
     Route: 065
  9. DEXCHLORPHENIRAMINE [Concomitant]
     Active Substance: DEXCHLORPHENIRAMINE
     Indication: Product used for unknown indication
     Dosage: UNK
  10. SULFAMETHOXAZOLE [Concomitant]
     Active Substance: SULFAMETHOXAZOLE
     Indication: Product used for unknown indication
     Dosage: 800 MG 0.33 WEEK
  11. ACETAMINOPHEN [Concomitant]
     Active Substance: ACETAMINOPHEN
     Indication: Product used for unknown indication
     Dosage: 15 MG/KG

REACTIONS (3)
  - Hypogammaglobulinaemia [Unknown]
  - Off label use [Recovered/Resolved]
  - Off label use [Recovered/Resolved]
